FAERS Safety Report 17508412 (Version 1)
Quarter: 2020Q1

REPORT INFORMATION
  Report Type: Spontaneous
  Country: ES (occurrence: ES)
  Receive Date: 20200306
  Receipt Date: 20200306
  Transmission Date: 20200409
  Serious: Yes (Life-Threatening, Hospitalization, Other)
  Sender: FDA-Public Use
  Company Number: ES-GLAXOSMITHKLINE-ES2020039530

PATIENT
  Age: 89 Year
  Sex: Male

DRUGS (6)
  1. SINTROM [Interacting]
     Active Substance: ACENOCOUMAROL
     Dosage: 12.5 MG, WE
     Route: 048
     Dates: start: 20181220, end: 20200204
  2. CEFUROXIME AXETIL. [Suspect]
     Active Substance: CEFUROXIME AXETIL
     Indication: RESPIRATORY TRACT INFECTION
     Dosage: 500 MG, QD
     Route: 048
     Dates: start: 20200210, end: 20200216
  3. SINTROM [Interacting]
     Active Substance: ACENOCOUMAROL
     Dosage: 12 MG, WE
     Route: 048
     Dates: start: 20150320, end: 20181219
  4. SINTROM [Interacting]
     Active Substance: ACENOCOUMAROL
     Indication: ATRIAL FIBRILLATION
     Dosage: 14 MG, WE
     Route: 048
     Dates: start: 20110914, end: 20150319
  5. SINTROM [Interacting]
     Active Substance: ACENOCOUMAROL
     Dosage: 9 MG, WE
     Route: 048
     Dates: start: 20200212, end: 20200216
  6. SINTROM [Interacting]
     Active Substance: ACENOCOUMAROL
     Dosage: 11 MG, WE
     Route: 048
     Dates: start: 20200205, end: 20200211

REACTIONS (3)
  - Drug interaction [Unknown]
  - Retroperitoneal haematoma [Unknown]
  - Hypocoagulable state [Recovering/Resolving]

NARRATIVE: CASE EVENT DATE: 2020
